FAERS Safety Report 4447148-3 (Version None)
Quarter: 2004Q3

REPORT INFORMATION
  Report Type: 
  Country: None (occurrence: None)
  Receive Date: 20040908
  Receipt Date: 20040908
  Transmission Date: 20050211
  Serious: No
  Sender: FDA-Public Use
  Company Number: None

PATIENT
  Age: 20 Year
  Sex: Male
  Weight: 83.9154 kg

DRUGS (2)
  1. EPI-SPRAY -FQI [Suspect]
     Indication: ACNE
     Dosage: 1-2 TIMES / DAY
     Route: 061
  2. EPICLEAR FACIAL SPRAY [Suspect]

REACTIONS (3)
  - BURNING SENSATION [None]
  - ERYTHEMA [None]
  - RASH PUSTULAR [None]
